FAERS Safety Report 11934208 (Version 1)
Quarter: 2016Q1

REPORT INFORMATION
  Report Type: Spontaneous
  Country: US (occurrence: None)
  Receive Date: 20160120
  Receipt Date: 20160120
  Transmission Date: 20160526
  Serious: No
  Sender: FDA-Public Use
  Company Number: None

PATIENT
  Age: 27 Year
  Sex: Female

DRUGS (4)
  1. RASUVO [Suspect]
     Active Substance: METHOTREXATE SODIUM
     Indication: TENOSYNOVITIS
     Route: 058
     Dates: start: 20151202
  2. HUMIRA [Concomitant]
     Active Substance: ADALIMUMAB
  3. RASUVO [Suspect]
     Active Substance: METHOTREXATE SODIUM
     Indication: SYNOVITIS
     Route: 058
     Dates: start: 20151202
  4. METHOTREXATE [Concomitant]
     Active Substance: METHOTREXATE

REACTIONS (2)
  - General symptom [None]
  - Condition aggravated [None]

NARRATIVE: CASE EVENT DATE: 20160115
